FAERS Safety Report 6074999-4 (Version None)
Quarter: 2009Q1

REPORT INFORMATION
  Report Type: 
  Country: None (occurrence: None)
  Receive Date: 20090212
  Receipt Date: 20090206
  Transmission Date: 20090719
  Serious: No
  Sender: FDA-Public Use
  Company Number: CH-ASTRAZENECA-2009PK00551

PATIENT
  Age: 83 Year
  Sex: Male
  Weight: 80 kg

DRUGS (11)
  1. SEROQUEL [Suspect]
     Route: 048
     Dates: start: 20081115, end: 20081123
  2. SEROQUEL [Suspect]
     Route: 048
     Dates: start: 20081124, end: 20081127
  3. SEROQUEL [Suspect]
     Route: 048
     Dates: start: 20081128, end: 20081228
  4. DEPAKENE [Suspect]
     Route: 048
     Dates: start: 20081128, end: 20081128
  5. DEPAKENE [Suspect]
     Route: 048
     Dates: start: 20081129, end: 20081203
  6. DEPAKENE [Suspect]
     Route: 048
     Dates: start: 20081204, end: 20081209
  7. PANTOZOL [Suspect]
     Route: 048
     Dates: start: 20081120, end: 20090107
  8. SEROPRAM [Concomitant]
     Route: 048
     Dates: start: 20081115, end: 20081115
  9. SEROPRAM [Concomitant]
     Route: 048
     Dates: start: 20081120, end: 20081126
  10. SEROPRAM [Concomitant]
     Route: 048
     Dates: start: 20081127, end: 20081209
  11. STILNOX [Concomitant]
     Route: 048
     Dates: start: 20081115, end: 20090109

REACTIONS (1)
  - THROMBOCYTOPENIA [None]
